FAERS Safety Report 14158556 (Version 1)
Quarter: 2017Q4

REPORT INFORMATION
  Report Type: Spontaneous
  Country: US (occurrence: US)
  Receive Date: 20171103
  Receipt Date: 20171103
  Transmission Date: 20180321
  Serious: Yes (Other)
  Sender: FDA-Public Use
  Company Number: US-BAYER-2017-207184

PATIENT
  Age: 50 Year
  Sex: Female

DRUGS (1)
  1. RID 1-2-3 SYSTEM [Suspect]
     Active Substance: PIPERONYL BUTOXIDE\PYRETHRUM EXTRACT
     Indication: LICE INFESTATION
     Dosage: UNK
     Route: 061

REACTIONS (3)
  - Chemical burns of eye [Unknown]
  - Eye irritation [Unknown]
  - Accidental exposure to product [Recovered/Resolved]

NARRATIVE: CASE EVENT DATE: 20171025
